FAERS Safety Report 7404974-6 (Version None)
Quarter: 2011Q2

REPORT INFORMATION
  Report Type: 
  Country: None (occurrence: None)
  Receive Date: 20110411
  Receipt Date: 20100307
  Transmission Date: 20111010
  Serious: No
  Sender: FDA-Public Use
  Company Number: US-KINGPHARMUSA00001-K201000299

PATIENT
  Sex: Female

DRUGS (1)
  1. THROMBIN-JMI [Suspect]
     Dosage: UNK
     Dates: start: 20100201, end: 20100201

REACTIONS (1)
  - ADVERSE DRUG REACTION [None]
